FAERS Safety Report 8184358-6 (Version None)
Quarter: 2012Q1

REPORT INFORMATION
  Report Type: 
  Country: None (occurrence: None)
  Receive Date: 20120305
  Receipt Date: 20120221
  Transmission Date: 20120608
  Serious: Yes (Hospitalization, Other)
  Sender: FDA-Public Use
  Company Number: US-ELI_LILLY_AND_COMPANY-US200910007679

PATIENT
  Sex: Male

DRUGS (10)
  1. ZYPREXA [Suspect]
     Indication: SCHIZOPHRENIA, PARANOID TYPE
     Dosage: 5 MG, EACH EVENING
     Route: 048
     Dates: start: 20021002
  2. ZYPREXA [Suspect]
     Dosage: 15 MG, EACH EVENING
     Route: 048
     Dates: end: 20050101
  3. BENZTROPINE MESYLATE [Concomitant]
  4. HALDOL [Concomitant]
  5. BENZODIAZEPINE DERIVATIVES [Concomitant]
  6. RISPERDAL [Concomitant]
  7. ZYPREXA [Suspect]
     Dosage: 20 MG, EACH EVENING
     Route: 048
  8. KLONOPIN [Concomitant]
  9. VENLAFAXINE HCL [Concomitant]
  10. ZYPREXA [Suspect]
     Dosage: 10 MG, EACH EVENING
     Route: 048

REACTIONS (11)
  - GLOMERULONEPHRITIS CHRONIC [None]
  - TYPE 2 DIABETES MELLITUS [None]
  - GASTROOESOPHAGEAL REFLUX DISEASE [None]
  - AKATHISIA [None]
  - HEAD TITUBATION [None]
  - HYPERTENSION [None]
  - HOMICIDAL IDEATION [None]
  - HALLUCINATION, AUDITORY [None]
  - SUICIDAL IDEATION [None]
  - HYPERLIPIDAEMIA [None]
  - WEIGHT INCREASED [None]
